FAERS Safety Report 11493748 (Version 1)
Quarter: 2015Q3

REPORT INFORMATION
  Report Type: Spontaneous
  Country: US (occurrence: None)
  Receive Date: 20150910
  Receipt Date: 20150910
  Transmission Date: 20151125
  Serious: Yes (Life-Threatening, Hospitalization)
  Sender: FDA-Public Use
  Company Number: None

PATIENT
  Age: 74 Year
  Sex: Male
  Weight: 86.18 kg

DRUGS (9)
  1. METOPROLOL TARTRATE 50MG [Suspect]
     Active Substance: METOPROLOL TARTRATE
     Indication: HYPERTENSION
     Route: 048
     Dates: start: 20140706, end: 20140903
  2. LOVASTATIN. [Concomitant]
     Active Substance: LOVASTATIN
  3. METOPROLOL ER SUCCINATE [Concomitant]
     Active Substance: METOPROLOL SUCCINATE
  4. ASPRIN 81MG [Concomitant]
  5. GLUCOSAMINE [Concomitant]
     Active Substance: GLUCOSAMINE
  6. PANTOPRAZOLE [Concomitant]
     Active Substance: PANTOPRAZOLE SODIUM
  7. ONE A DAY [Concomitant]
  8. B-100 COMPLEX [Concomitant]
     Active Substance: DEXPANTHENOL\NIACINAMIDE\PYRIDOXINE HYDROCHLORIDE\RIBOFLAVIN 5^-PHOSPHATE SODIUM\THIAMINE HYDROCHLORIDE
  9. TAMSULOSIN [Concomitant]
     Active Substance: TAMSULOSIN

REACTIONS (16)
  - Blood pressure increased [None]
  - Cardiac disorder [None]
  - Extra dose administered [None]
  - Fatigue [None]
  - Fear [None]
  - Thinking abnormal [None]
  - Anxiety [None]
  - Drug dispensing error [None]
  - Wrong drug administered [None]
  - Balance disorder [None]
  - Depressed mood [None]
  - Visual impairment [None]
  - Pulse pressure increased [None]
  - Flushing [None]
  - Paraesthesia [None]
  - Asthenia [None]

NARRATIVE: CASE EVENT DATE: 20140702
